FAERS Safety Report 6685217-8 (Version None)
Quarter: 2010Q2

REPORT INFORMATION
  Report Type: 
  Country: None (occurrence: None)
  Receive Date: 20100416
  Receipt Date: 20100405
  Transmission Date: 20101027
  Serious: Yes (Hospitalization)
  Sender: FDA-Public Use
  Company Number: US-ELI_LILLY_AND_COMPANY-US201004001540

PATIENT
  Age: 59 Year
  Sex: Male

DRUGS (4)
  1. ZYPREXA [Suspect]
     Indication: PARANOIA
     Dosage: 5 MG, EACH MORNING
     Dates: start: 20000101
  2. ZYPREXA [Suspect]
     Dosage: 15 MG, EACH EVENING
  3. OTHER ANTIDEPRESSANTS [Concomitant]
  4. OTHER HYPNOTICS AND SEDATIVES [Concomitant]

REACTIONS (1)
  - PARANOIA [None]
